FAERS Safety Report 6566254-0 (Version None)
Quarter: 2010Q1

REPORT INFORMATION
  Report Type: 
  Country: None (occurrence: None)
  Receive Date: 20100202
  Receipt Date: 20100121
  Transmission Date: 20100710
  Serious: Yes (Hospitalization, Other)
  Sender: FDA-Public Use
  Company Number: JP-JNJFOC-20100109697

PATIENT
  Sex: Male
  Weight: 54 kg

DRUGS (19)
  1. REMICADE [Suspect]
     Indication: POLYARTERITIS NODOSA
     Route: 042
  2. REMICADE [Suspect]
     Dosage: DOSE ALSO REPORTED AS 160 MG., TOTAL INFUSIONS = 8
     Route: 042
  3. REMICADE [Suspect]
     Route: 042
  4. REMICADE [Suspect]
     Route: 042
  5. REMICADE [Suspect]
     Route: 042
  6. REMICADE [Suspect]
     Route: 042
  7. REMICADE [Suspect]
     Route: 042
  8. REMICADE [Suspect]
     Route: 042
  9. METHOTREXATE [Suspect]
     Indication: POLYARTERITIS NODOSA
     Route: 048
  10. METHOTREXATE [Suspect]
     Route: 048
  11. METHOTREXATE [Suspect]
     Route: 048
  12. METHOTREXATE [Suspect]
     Route: 048
  13. METHOTREXATE [Suspect]
     Dosage: DOSE REPORTED AS  BETWEEN 6-20 MG/WEEK OVER 1 TO 6 YEARS.
     Route: 048
  14. METHOTREXATE [Suspect]
     Route: 048
  15. METHOTREXATE [Suspect]
     Route: 048
  16. PREDNISONE [Concomitant]
     Indication: POLYARTERITIS NODOSA
     Route: 048
  17. PREDNISONE [Concomitant]
     Route: 048
  18. ENDOXAN [Concomitant]
  19. ENDOXAN [Concomitant]

REACTIONS (1)
  - EPSTEIN-BARR VIRUS ASSOCIATED LYMPHOPROLIFERATIVE DISORDER [None]
